FAERS Safety Report 24592490 (Version 1)
Quarter: 2024Q4

REPORT INFORMATION
  Report Type: Spontaneous
  Country: CN (occurrence: CN)
  Receive Date: 20241108
  Receipt Date: 20241108
  Transmission Date: 20250115
  Serious: Yes (Death, Life-Threatening, Hospitalization)
  Sender: MACLEODS
  Company Number: CN-MLMSERVICE-20241021-PI232425-00202-1

PATIENT

DRUGS (2)
  1. LINEZOLID [Suspect]
     Active Substance: LINEZOLID
     Indication: Staphylococcal infection
     Dosage: LINEZOLID 0.035 G Q8H, INTRAVENOUS INFUSION RATE 15 ML/H
     Route: 042
  2. Retinol/Vitamin D [Concomitant]
     Indication: Product used for unknown indication
     Dosage: 1500 IU:500 IU ONCE DAILY
     Route: 065

REACTIONS (9)
  - Cardiac arrest neonatal [Fatal]
  - Neonatal respiratory arrest [Fatal]
  - Lactic acidosis [Fatal]
  - Hypoxic ischaemic encephalopathy neonatal [Fatal]
  - Necrotising enterocolitis neonatal [Fatal]
  - Multiple organ dysfunction syndrome [Fatal]
  - Myocardial injury [Fatal]
  - Neonatal respiratory acidosis [Fatal]
  - Condition aggravated [Fatal]
